FAERS Safety Report 25981511 (Version 1)
Quarter: 2025Q4

REPORT INFORMATION
  Report Type: Report from Study
  Country: US (occurrence: US)
  Receive Date: 20251030
  Receipt Date: 20251030
  Transmission Date: 20260118
  Serious: Yes (Other)
  Sender: ABBVIE
  Company Number: US-ABBVIE-6520844

PATIENT
  Sex: Female

DRUGS (1)
  1. SKYRIZI [Suspect]
     Active Substance: RISANKIZUMAB-RZAA
     Indication: Colitis ulcerative
     Route: 058
     Dates: start: 20241104

REACTIONS (10)
  - Defaecation urgency [Not Recovered/Not Resolved]
  - Intestinal resection [Recovered/Resolved]
  - Incision site abscess [Unknown]
  - Pain [Unknown]
  - Fatigue [Unknown]
  - Frequent bowel movements [Unknown]
  - Gastrointestinal motility disorder [Unknown]
  - Medical device removal [Unknown]
  - Stoma site inflammation [Unknown]
  - Ostomy bag placement [Unknown]
